FAERS Safety Report 10365055 (Version 1)
Quarter: 2014Q3

REPORT INFORMATION
  Report Type: Spontaneous
  Country: US (occurrence: None)
  Receive Date: 20140804
  Receipt Date: 20140804
  Transmission Date: 20150326
  Serious: Yes (Other)
  Sender: FDA-Public Use
  Company Number: 2014AP003700

PATIENT
  Age: 48 Year
  Sex: Female

DRUGS (10)
  1. VORICONAZOLE. [Suspect]
     Active Substance: VORICONAZOLE
     Indication: OESOPHAGEAL CANDIDIASIS
     Route: 048
  2. SODIUM CITRATE (SODIUM CITRATE) [Concomitant]
  3. MIRTAZAPINE (MIRTAZAPINE) [Concomitant]
     Active Substance: MIRTAZAPINE
  4. NYSTATIN (NYSTATIN) [Concomitant]
     Active Substance: NYSTATIN
  5. FAMOTIDINE (FAMOTIDINE) [Concomitant]
     Active Substance: FAMOTIDINE
  6. CITRIC ACID (CITRIC ACID) [Concomitant]
  7. LOSARTAN (LOSARTAN) [Concomitant]
     Active Substance: LOSARTAN
  8. CALCIUM CARBONATE (CALCIUM CARBONATE) [Concomitant]
  9. BUDESONIDE. [Suspect]
     Active Substance: BUDESONIDE
     Indication: CROHN^S DISEASE
     Route: 048
  10. HYDROCODONE, PARACETAMOL (HYDROCODONE, PARACETAMOL) [Concomitant]

REACTIONS (6)
  - Drug interaction [None]
  - Dysphagia [None]
  - Renal impairment [None]
  - Cushing^s syndrome [None]
  - Oedema peripheral [None]
  - Fatigue [None]
